FAERS Safety Report 7100234-1 (Version None)
Quarter: 2010Q4

REPORT INFORMATION
  Report Type: 
  Country: None (occurrence: None)
  Receive Date: 20101112
  Receipt Date: 20101110
  Transmission Date: 20110411
  Serious: No
  Sender: FDA-Public Use
  Company Number: BE-PFIZER INC-2010123906

PATIENT
  Age: 61 Year
  Sex: Male
  Weight: 83 kg

DRUGS (4)
  1. SUTENT [Suspect]
     Indication: METASTATIC RENAL CELL CARCINOMA
     Dosage: 50 MG, 1X/DAY
     Route: 048
  2. PERINDOPRIL ERBUMINE [Concomitant]
     Dosage: UNK
     Route: 048
  3. KREDEX [Concomitant]
     Dosage: 6.25 MG, 2X/DAY
     Route: 048
  4. ZOCOR [Concomitant]
     Dosage: 40 MG, 1X/DAY
     Route: 048

REACTIONS (3)
  - DIARRHOEA [None]
  - DRUG TOXICITY [None]
  - RASH [None]
